FAERS Safety Report 6092081-7 (Version None)
Quarter: 2009Q1

REPORT INFORMATION
  Report Type: 
  Country: None (occurrence: None)
  Receive Date: 20090225
  Receipt Date: 20090223
  Transmission Date: 20090719
  Serious: Yes (Other)
  Sender: FDA-Public Use
  Company Number: CH-PFIZER INC-2009173953

PATIENT

DRUGS (1)
  1. SORTIS [Suspect]
     Dosage: 40 MG, UNK
     Route: 048
     Dates: start: 20090128, end: 20090128

REACTIONS (3)
  - FEELING OF BODY TEMPERATURE CHANGE [None]
  - LOSS OF CONSCIOUSNESS [None]
  - MALAISE [None]
